FAERS Safety Report 12632397 (Version 2)
Quarter: 2016Q3

REPORT INFORMATION
  Report Type: Spontaneous
  Country: US (occurrence: US)
  Receive Date: 20160808
  Receipt Date: 20160808
  Transmission Date: 20161109
  Serious: No
  Sender: FDA-Public Use
  Company Number: US-BEH-2016062719

PATIENT
  Sex: Female
  Weight: 99 kg

DRUGS (35)
  1. EPIPEN [Concomitant]
     Active Substance: EPINEPHRINE
  2. SULFASALAZINE. [Concomitant]
     Active Substance: SULFASALAZINE
  3. DULERA [Concomitant]
     Active Substance: FORMOTEROL FUMARATE DIHYDRATE\MOMETASONE FUROATE
  4. NEXIUM [Concomitant]
     Active Substance: ESOMEPRAZOLE MAGNESIUM
  5. HIZENTRA [Suspect]
     Active Substance: HUMAN IMMUNOGLOBULIN G
     Indication: IMMUNODEFICIENCY COMMON VARIABLE
     Route: 058
  6. DIPHENHYDRAMINE. [Concomitant]
     Active Substance: DIPHENHYDRAMINE
  7. PREDNISONE. [Concomitant]
     Active Substance: PREDNISONE
  8. HYDROXYCHLOROQUINE [Concomitant]
     Active Substance: HYDROXYCHLOROQUINE
  9. CETIRIZINE [Concomitant]
     Active Substance: CETIRIZINE HYDROCHLORIDE
  10. POTASSIUM CL [Concomitant]
     Active Substance: POTASSIUM CHLORIDE
  11. HIZENTRA [Suspect]
     Active Substance: HUMAN IMMUNOGLOBULIN G
     Route: 058
  12. ATROVENT [Concomitant]
     Active Substance: IPRATROPIUM BROMIDE
  13. TRIAMCINOLONE ACETONIDE. [Concomitant]
     Active Substance: TRIAMCINOLONE ACETONIDE
  14. FLONASE [Concomitant]
     Active Substance: FLUTICASONE PROPIONATE
  15. ULTRA MEGA [Concomitant]
  16. HIZENTRA [Suspect]
     Active Substance: HUMAN IMMUNOGLOBULIN G
     Route: 058
  17. ACETAMINOPHEN. [Concomitant]
     Active Substance: ACETAMINOPHEN
  18. METHYLPREDNISOLONE. [Concomitant]
     Active Substance: METHYLPREDNISOLONE
  19. ASTELIN [Concomitant]
     Active Substance: AZELASTINE HYDROCHLORIDE
  20. LASIX [Concomitant]
     Active Substance: FUROSEMIDE
  21. VORTEX HOLDING CHAMBER [Concomitant]
  22. GABAPENTIN. [Concomitant]
     Active Substance: GABAPENTIN
  23. FISH OIL [Concomitant]
     Active Substance: FISH OIL
  24. HIZENTRA [Suspect]
     Active Substance: HUMAN IMMUNOGLOBULIN G
     Route: 058
  25. LIDOCAINE/PRILOCAINE [Concomitant]
     Active Substance: LIDOCAINE\PRILOCAINE
  26. MUPIROCIN. [Concomitant]
     Active Substance: MUPIROCIN
  27. PRAVACHOL [Concomitant]
     Active Substance: PRAVASTATIN SODIUM
  28. PROVENTIL [Concomitant]
     Active Substance: ALBUTEROL
  29. OS-CAL 500+D [Concomitant]
  30. PROZAC [Concomitant]
     Active Substance: FLUOXETINE HYDROCHLORIDE
  31. MELOXICAM. [Concomitant]
     Active Substance: MELOXICAM
  32. HCTZ [Concomitant]
     Active Substance: HYDROCHLOROTHIAZIDE
  33. NAPROXEN. [Concomitant]
     Active Substance: NAPROXEN
  34. SINGULAIR [Concomitant]
     Active Substance: MONTELUKAST SODIUM
  35. LOSARTAN. [Concomitant]
     Active Substance: LOSARTAN

REACTIONS (2)
  - Candida infection [Unknown]
  - Fall [Unknown]
